FAERS Safety Report 20140154 (Version 1)
Quarter: 2021Q4

REPORT INFORMATION
  Report Type: Spontaneous
  Country: JP (occurrence: None)
  Receive Date: 20211202
  Receipt Date: 20211202
  Transmission Date: 20220303
  Serious: Yes (Other)
  Sender: FDA-Public Use
  Company Number: 2021A816888

PATIENT
  Age: 48 Year
  Sex: Female

DRUGS (4)
  1. NOLVADEX [Suspect]
     Active Substance: TAMOXIFEN CITRATE
     Indication: Breast cancer female
     Dosage: UNKNOWN
     Route: 048
  2. FASLODEX [Suspect]
     Active Substance: FULVESTRANT
     Indication: Breast cancer female
     Dosage: UNKNOWN
     Route: 030
     Dates: start: 201902
  3. VERZENIO [Suspect]
     Active Substance: ABEMACICLIB
     Indication: Breast cancer female
     Dosage: DOSE UNKNOWN
     Route: 065
     Dates: start: 201902
  4. LH-RH [Concomitant]
     Indication: Breast cancer female
     Dosage: UNKNOWN
     Route: 065
     Dates: start: 201902

REACTIONS (5)
  - Metastases to liver [Unknown]
  - Tumour marker increased [Unknown]
  - Diarrhoea [Unknown]
  - Taste disorder [Unknown]
  - Amenorrhoea [Unknown]

NARRATIVE: CASE EVENT DATE: 20190101
